FAERS Safety Report 6554022-5 (Version None)
Quarter: 2010Q1

REPORT INFORMATION
  Report Type: 
  Country: None (occurrence: None)
  Receive Date: 20100125
  Receipt Date: 20100125
  Transmission Date: 20100710
  Serious: Yes (Hospitalization)
  Sender: FDA-Public Use
  Company Number: None

PATIENT
  Age: 85 Year
  Sex: Male
  Weight: 71.7 kg

DRUGS (9)
  1. SEROQUEL [Suspect]
     Indication: SCHIZOPHRENIA
     Dosage: 25MG PO AT BEDTIME
     Route: 048
     Dates: start: 20080128
  2. AMLODIPINE BESYLATE [Concomitant]
  3. ASPIRIN [Concomitant]
  4. ATROPINE SULFATE [Concomitant]
  5. BRIMONIDINE TARTRATE [Concomitant]
  6. OMEPRAZOLE [Concomitant]
  7. SIMVASTATIN [Concomitant]
  8. TRAVOPROST [Concomitant]
  9. DORZOLAMIDE/TIMOLOL OPHTH [Concomitant]

REACTIONS (3)
  - IMPAIRED SELF-CARE [None]
  - MEMORY IMPAIRMENT [None]
  - TREATMENT NONCOMPLIANCE [None]
